FAERS Safety Report 17361162 (Version 1)
Quarter: 2020Q1

REPORT INFORMATION
  Report Type: Report from Study
  Country: None (occurrence: CA)
  Receive Date: 20200203
  Receipt Date: 20200203
  Transmission Date: 20200409
  Serious: Yes (Other)
  Sender: FDA-Public Use
  Company Number: CA-ABBVIE-19K-028-2684481-00

PATIENT
  Sex: Male

DRUGS (1)
  1. HUMIRA [Suspect]
     Active Substance: ADALIMUMAB
     Indication: CROHN^S DISEASE
     Route: 058
     Dates: start: 20081103

REACTIONS (10)
  - Stoma complication [Not Recovered/Not Resolved]
  - Musculoskeletal pain [Not Recovered/Not Resolved]
  - Renal pain [Unknown]
  - Ocular hyperaemia [Not Recovered/Not Resolved]
  - Renal disorder [Not Recovered/Not Resolved]
  - Diarrhoea [Not Recovered/Not Resolved]
  - Glaucoma [Not Recovered/Not Resolved]
  - Colectomy [Unknown]
  - Visual impairment [Not Recovered/Not Resolved]
  - Intraocular pressure increased [Unknown]

NARRATIVE: CASE EVENT DATE: 2017
